FAERS Safety Report 5167489-4 (Version None)
Quarter: 2006Q4

REPORT INFORMATION
  Report Type: 
  Country: None (occurrence: None)
  Receive Date: 20061130
  Receipt Date: 20061114
  Transmission Date: 20070319
  Serious: Yes (Death, Life-Threatening, Hospitalization)
  Sender: FDA-Public Use
  Company Number: DSA_28992_2006

PATIENT
  Age: 66 Year
  Sex: Male

DRUGS (8)
  1. RENIVACE [Suspect]
     Indication: HYPERTENSION
     Dosage: 2.5 MG Q DAY; PO
     Route: 048
     Dates: start: 20060927, end: 20061025
  2. GASTER D [Suspect]
     Indication: GASTROINTESTINAL HAEMORRHAGE
     Dosage: 20 MG, BID; PO
     Route: 048
     Dates: start: 20060927, end: 20061026
  3. LIPITOR [Suspect]
     Indication: HYPERLIPIDAEMIA
     Dosage: 10 MG Q DAY; PO
     Route: 048
     Dates: start: 20060927, end: 20061026
  4. ASPIRIN [Suspect]
     Indication: CORONARY ARTERIAL STENT INSERTION
     Dosage: 100 MG BID; PO
     Route: 048
     Dates: start: 20060927, end: 20061025
  5. PLAVIX [Suspect]
     Indication: CORONARY ARTERIAL STENT INSERTION
     Dosage: 75 MG Q DA; PO
     Route: 048
     Dates: start: 20060927, end: 20061028
  6. SIGMART [Concomitant]
  7. LUPRAC [Concomitant]
  8. ARTIST [Concomitant]

REACTIONS (11)
  - ACUTE MYOCARDIAL INFARCTION [None]
  - APPARENT LIFE THREATENING EVENT [None]
  - BLOOD PRESSURE IMMEASURABLE [None]
  - CARDIAC DISORDER [None]
  - CARDIO-RESPIRATORY ARREST [None]
  - CONDITION AGGRAVATED [None]
  - GASTROINTESTINAL HAEMORRHAGE [None]
  - PYREXIA [None]
  - SKIN HAEMORRHAGE [None]
  - STEVENS-JOHNSON SYNDROME [None]
  - THROMBOSIS IN DEVICE [None]
